FAERS Safety Report 13254832 (Version 5)
Quarter: 2020Q3

REPORT INFORMATION
  Report Type: Report from Study
  Country: US (occurrence: US)
  Receive Date: 20170221
  Receipt Date: 20171212
  Transmission Date: 20201105
  Serious: Yes (Hospitalization)
  Sender: FDA-Public Use
  Company Number: US-ROCHE-1620241

PATIENT
  Age: 52 Year
  Sex: Male
  Weight: 93.3 kg

DRUGS (27)
  1. ALECTINIB. [Suspect]
     Active Substance: ALECTINIB
     Indication: NON-SMALL CELL LUNG CANCER
     Dosage: DATE OF MOST RECENT DOSE PRIOR TO SAE (SKIN INFECTION): 15/JUN/2015?DATE OF MOST RECENT DOSE PRIOR T
     Route: 048
     Dates: start: 20150526
  2. LISINOPRIL. [Concomitant]
     Active Substance: LISINOPRIL
     Indication: CORONARY ARTERY DISEASE
     Route: 065
     Dates: end: 20150716
  3. NAPROXEN. [Concomitant]
     Active Substance: NAPROXEN
     Indication: PAIN
     Route: 065
     Dates: start: 20150602, end: 20150716
  4. HEPARIN (PORCINE) [Concomitant]
     Dosage: ANTI?COAGULANT
     Route: 065
     Dates: start: 20150615, end: 20150716
  5. DOCUSATE SODIUM. [Concomitant]
     Active Substance: DOCUSATE SODIUM
     Indication: CONSTIPATION
     Route: 065
     Dates: start: 20150615, end: 20161006
  6. CHLORTHALIDONE. [Concomitant]
     Active Substance: CHLORTHALIDONE
     Indication: HYPERTENSION
     Route: 065
     Dates: end: 20150623
  7. PROCHLORPERAZINE MALEATE. [Concomitant]
     Active Substance: PROCHLORPERAZINE MALEATE
     Indication: NAUSEA
     Route: 065
     Dates: end: 20150616
  8. POLYETHYLENE GLYCOL [Concomitant]
     Active Substance: POLYETHYLENE GLYCOLS
     Indication: CONSTIPATION
     Route: 065
     Dates: start: 20150615, end: 20150716
  9. SENNA [Concomitant]
     Active Substance: SENNA LEAF\SENNOSIDES\SENNOSIDES A AND B
     Indication: CONSTIPATION
     Route: 065
     Dates: start: 20150710, end: 20161006
  10. ASPIRIN. [Concomitant]
     Active Substance: ASPIRIN
     Indication: CORONARY ARTERY DISEASE
     Route: 065
     Dates: start: 20150625, end: 20170906
  11. MORPHINE [Concomitant]
     Active Substance: MORPHINE
     Indication: PAIN
     Route: 065
     Dates: end: 20150616
  12. BISACODYL. [Concomitant]
     Active Substance: BISACODYL
     Indication: CONSTIPATION
     Route: 065
     Dates: end: 20150602
  13. ALECTINIB. [Suspect]
     Active Substance: ALECTINIB
     Dosage: THERAPY RESTARTED AT REDUCED DOSE
     Route: 048
  14. EPLERENONE. [Concomitant]
     Active Substance: EPLERENONE
     Route: 065
     Dates: start: 201705
  15. FAMOTIDINE. [Concomitant]
     Active Substance: FAMOTIDINE
     Indication: PROPHYLAXIS
     Route: 065
     Dates: end: 20150602
  16. LOPERAMIDE [Concomitant]
     Active Substance: LOPERAMIDE
     Indication: DIARRHOEA
     Route: 065
     Dates: end: 20150614
  17. METFORMIN [Concomitant]
     Active Substance: METFORMIN HYDROCHLORIDE
     Indication: DIABETES MELLITUS
     Route: 065
     Dates: end: 20150916
  18. PREDNISONE. [Concomitant]
     Active Substance: PREDNISONE
     Indication: GOUT
     Route: 065
     Dates: start: 20150814, end: 20150821
  19. LISINOPRIL. [Concomitant]
     Active Substance: LISINOPRIL
     Indication: ACUTE CORONARY SYNDROME
     Route: 065
     Dates: start: 201705
  20. ACETAMINOPHEN. [Concomitant]
     Active Substance: ACETAMINOPHEN
     Indication: PAIN
     Route: 065
     Dates: start: 20150615, end: 20170821
  21. MIRTAZAPINE. [Concomitant]
     Active Substance: MIRTAZAPINE
     Indication: DEPRESSION
     Dosage: ANTI?DEPRESSANT
     Route: 065
     Dates: end: 20161006
  22. INSULIN [Concomitant]
     Active Substance: INSULIN NOS
     Indication: DIABETES MELLITUS
     Route: 065
     Dates: start: 20150623, end: 20150716
  23. CLOPIDOGREL [Concomitant]
     Active Substance: CLOPIDOGREL BISULFATE
     Indication: CORONARY ARTERY DISEASE
     Dosage: USED AS: ANTI?COAGULANT
     Route: 065
     Dates: end: 20170906
  24. ATENOLOL + CHLORTHALIDONE [Concomitant]
     Indication: HYPERTENSION
     Route: 065
     Dates: start: 20150209, end: 20150731
  25. ATORVASTATIN [Concomitant]
     Active Substance: ATORVASTATIN
     Indication: CORONARY ARTERY DISEASE
  26. MEMANTINE. [Concomitant]
     Active Substance: MEMANTINE
     Indication: AMNESIA
  27. OXYCODONE [Concomitant]
     Active Substance: OXYCODONE
     Indication: PAIN
     Route: 065
     Dates: start: 20150615

REACTIONS (2)
  - Skin infection [Recovered/Resolved]
  - Blood creatinine increased [Recovered/Resolved]

NARRATIVE: CASE EVENT DATE: 20150615
